FAERS Safety Report 15102716 (Version 1)
Quarter: 2018Q3

REPORT INFORMATION
  Report Type: Spontaneous
  Country: US (occurrence: US)
  Receive Date: 20180703
  Receipt Date: 20180703
  Transmission Date: 20181010
  Serious: No
  Sender: FDA-Public Use
  Company Number: US-SA-2018SA174695

PATIENT
  Age: 54 Year
  Sex: Female

DRUGS (1)
  1. LEVOCETIRIZINE [Suspect]
     Active Substance: LEVOCETIRIZINE
     Indication: HYPERSENSITIVITY
     Dosage: 5 MG, HS
     Route: 065
     Dates: start: 20180605, end: 20180606

REACTIONS (2)
  - Poor quality sleep [Recovered/Resolved]
  - Hot flush [Recovered/Resolved]
